FAERS Safety Report 13168052 (Version 3)
Quarter: 2017Q2

REPORT INFORMATION
  Report Type: Spontaneous
  Country: US (occurrence: US)
  Receive Date: 20170131
  Receipt Date: 20170407
  Transmission Date: 20170830
  Serious: Yes (Hospitalization)
  Sender: FDA-Public Use
  Company Number: US-JNJFOC-20170126297

PATIENT
  Age: 80 Year
  Sex: Male

DRUGS (3)
  1. XARELTO [Suspect]
     Active Substance: RIVAROXABAN
     Indication: THROMBOSIS PROPHYLAXIS
     Dosage: 15 MG TWICE A DAY THEN 10 MG TWICE A DAY
     Route: 048
     Dates: start: 20150530, end: 201507
  2. ASPIRIN. [Suspect]
     Active Substance: ASPIRIN
     Indication: PRODUCT USED FOR UNKNOWN INDICATION
     Route: 048
  3. XARELTO [Suspect]
     Active Substance: RIVAROXABAN
     Indication: PERIPHERAL ARTERY BYPASS
     Dosage: 15 MG TWICE A DAY THEN 10 MG TWICE A DAY
     Route: 048
     Dates: start: 20150530, end: 201507

REACTIONS (7)
  - Incision site haemorrhage [Recovered/Resolved]
  - Epistaxis [Recovered/Resolved]
  - Vascular graft thrombosis [Unknown]
  - Arterial ligation [Unknown]
  - Product use in unapproved indication [Unknown]
  - Leg amputation [Unknown]
  - Off label use [Unknown]

NARRATIVE: CASE EVENT DATE: 20150530
